FAERS Safety Report 9039235 (Version 1)
Quarter: 2013Q1

REPORT INFORMATION
  Report Type: Spontaneous
  Country: US (occurrence: None)
  Receive Date: 20130123
  Receipt Date: 20130123
  Transmission Date: 20140127
  Serious: Yes (Hospitalization, Disabling, Other)
  Sender: FDA-Public Use
  Company Number: None

PATIENT
  Age: 35 Year
  Sex: Female
  Weight: 80.74 kg

DRUGS (2)
  1. ADVAIR DISKUS [Suspect]
     Indication: ASTHMA
     Dates: start: 20100201, end: 20101104
  2. ADVAIR DISKUS [Suspect]
     Dates: start: 20101104, end: 20120301

REACTIONS (2)
  - Pneumonia [None]
  - Asthma [None]
